FAERS Safety Report 11782370 (Version 1)
Quarter: 2015Q4

REPORT INFORMATION
  Report Type: Report from Study
  Country: KR (occurrence: KR)
  Receive Date: 20151127
  Receipt Date: 20151127
  Transmission Date: 20160305
  Serious: Yes (Hospitalization)
  Sender: FDA-Public Use
  Company Number: KR-AMGEN-KORCT2015125885

PATIENT
  Age: 48 Year
  Sex: Female
  Weight: 52.2 kg

DRUGS (16)
  1. CYCLOPHOSPHAMIDE. [Concomitant]
     Active Substance: CYCLOPHOSPHAMIDE
     Indication: BREAST CANCER
     Dosage: 770 MG, UNK
     Route: 042
     Dates: start: 20150905, end: 20150905
  2. PEGFILGRASTIM [Suspect]
     Active Substance: PEGFILGRASTIM
     Dosage: 6 MG, 1X/3WEEKS
     Route: 058
     Dates: start: 20151018
  3. PEGFILGRASTIM [Suspect]
     Active Substance: PEGFILGRASTIM
     Dosage: 6 MG, 1X/3WEEKS
     Route: 058
     Dates: start: 20150927
  4. DOCETAXEL. [Concomitant]
     Active Substance: DOCETAXEL
     Dosage: 115 MG, UNK
     Route: 042
     Dates: start: 20151107, end: 20151107
  5. PEGFILGRASTIM [Suspect]
     Active Substance: PEGFILGRASTIM
     Dosage: 6 MG, 1X/3WEEKS
     Route: 058
     Dates: start: 20151108
  6. DOCETAXEL. [Concomitant]
     Active Substance: DOCETAXEL
     Indication: BREAST CANCER
     Dosage: 115 MG, UNK
     Route: 042
     Dates: start: 20150905, end: 20150905
  7. DOXORUBICIN [Concomitant]
     Active Substance: DOXORUBICIN
     Indication: BREAST CANCER
     Dosage: 77 MG, UNK
     Route: 042
     Dates: start: 20150905, end: 20150905
  8. CYCLOPHOSPHAMIDE. [Concomitant]
     Active Substance: CYCLOPHOSPHAMIDE
     Dosage: 770 MG, UNK
     Route: 042
     Dates: start: 20151107, end: 20151107
  9. DOCETAXEL. [Concomitant]
     Active Substance: DOCETAXEL
     Dosage: 115 MG, UNK
     Route: 042
     Dates: start: 20151017, end: 20151017
  10. DOXORUBICIN [Concomitant]
     Active Substance: DOXORUBICIN
     Dosage: 77 MG, UNK
     Route: 042
     Dates: start: 20150926, end: 20150926
  11. DOXORUBICIN [Concomitant]
     Active Substance: DOXORUBICIN
     Dosage: 77 MG, UNK
     Route: 042
     Dates: start: 20151107, end: 20151107
  12. CYCLOPHOSPHAMIDE. [Concomitant]
     Active Substance: CYCLOPHOSPHAMIDE
     Dosage: 770 MG, UNK
     Route: 042
     Dates: start: 20151017, end: 20151017
  13. DOCETAXEL. [Concomitant]
     Active Substance: DOCETAXEL
     Dosage: 115 MG, UNK
     Route: 042
     Dates: start: 20150926, end: 20150926
  14. PEGFILGRASTIM [Suspect]
     Active Substance: PEGFILGRASTIM
     Indication: FEBRILE NEUTROPENIA
     Dosage: 6 MG, 1X/3WEEKS
     Route: 058
     Dates: start: 20150906
  15. DOXORUBICIN [Concomitant]
     Active Substance: DOXORUBICIN
     Dosage: 77 MG, UNK
     Route: 042
     Dates: start: 20151017, end: 20151017
  16. CYCLOPHOSPHAMIDE. [Concomitant]
     Active Substance: CYCLOPHOSPHAMIDE
     Dosage: 770 MG, UNK
     Route: 042
     Dates: start: 20150926, end: 20150926

REACTIONS (1)
  - Neutropenia [Recovered/Resolved]

NARRATIVE: CASE EVENT DATE: 20151113
